FAERS Safety Report 13827900 (Version 2)
Quarter: 2017Q3

REPORT INFORMATION
  Report Type: Report from Study
  Country: US (occurrence: US)
  Receive Date: 20170803
  Receipt Date: 20170810
  Transmission Date: 20171127
  Serious: Yes (Hospitalization, Other)
  Sender: FDA-Public Use
  Company Number: US-BIOGEN-2017BI00438053

PATIENT
  Age: 66 Year
  Sex: Female

DRUGS (2)
  1. AVONEX [Suspect]
     Active Substance: INTERFERON BETA-1A
     Indication: MULTIPLE SCLEROSIS
     Route: 030
     Dates: start: 20020425, end: 2008
  2. AVONEX [Suspect]
     Active Substance: INTERFERON BETA-1A
     Route: 030
     Dates: start: 20110622, end: 20130723

REACTIONS (12)
  - Musculoskeletal pain [Not Recovered/Not Resolved]
  - Vomiting [Unknown]
  - Lower limb fracture [Recovered/Resolved]
  - Concussion [Recovered/Resolved]
  - Contusion [Not Recovered/Not Resolved]
  - Upper limb fracture [Unknown]
  - Gastrointestinal neoplasm [Recovered/Resolved]
  - Memory impairment [Not Recovered/Not Resolved]
  - Fall [Recovered/Resolved]
  - Wrist fracture [Not Recovered/Not Resolved]
  - Hernia [Unknown]
  - Cognitive disorder [Not Recovered/Not Resolved]

NARRATIVE: CASE EVENT DATE: 20130723
